FAERS Safety Report 7792769 (Version 2)
Quarter: 2014Q3

REPORT INFORMATION
  Report Type: Report from Study
  Country: KR (occurrence: KR)
  Receive Date: 20110131
  Receipt Date: 20140806
  Transmission Date: 20150326
  Serious: Yes (Other)
  Sender: FDA-Public Use
  Company Number: KR-ROCHE-755246

PATIENT

DRUGS (5)
  1. BASILIXIMAB [Concomitant]
     Active Substance: BASILIXIMAB
     Dosage: INDUCTION THERAPY, ON DAY 0 AND 4
     Route: 065
  2. METHYLPREDNISOLONE [Suspect]
     Active Substance: METHYLPREDNISOLONE
     Indication: IMMUNOSUPPRESSION
     Dosage: PRE, INTRA AND POST-OPERATIVE DAYS
     Route: 042
  3. TACROLIMUS. [Suspect]
     Active Substance: TACROLIMUS
     Indication: PROPHYLAXIS AGAINST TRANSPLANT REJECTION
     Dosage: ON POST-OPERATIVE DAY 5
     Route: 065
  4. METHYLPREDNISOLONE [Suspect]
     Active Substance: METHYLPREDNISOLONE
     Dosage: DOSE TAPERED, ON DAY 7
     Route: 042
  5. MYCOPHENOLATE MOFETIL. [Suspect]
     Active Substance: MYCOPHENOLATE MOFETIL
     Indication: PROPHYLAXIS AGAINST TRANSPLANT REJECTION
     Route: 065

REACTIONS (17)
  - Lymphoma [Unknown]
  - Renal cell carcinoma [Unknown]
  - Abdominal discomfort [Unknown]
  - Colorectal cancer [Unknown]
  - Gastric cancer [Unknown]
  - Leukopenia [Unknown]
  - Diabetes mellitus [Unknown]
  - Pancreatic carcinoma [Unknown]
  - Diarrhoea [Unknown]
  - Transplant rejection [Unknown]
  - Osteonecrosis [Unknown]
  - Infection [Unknown]
  - Brain neoplasm [Unknown]
  - Hypertension [Unknown]
  - Hepatocellular carcinoma [Unknown]
  - Hepatitis B [Unknown]
  - Bile duct cancer [Unknown]
